FAERS Safety Report 26210276 (Version 1)
Quarter: 2025Q4

REPORT INFORMATION
  Report Type: Spontaneous
  Country: EU (occurrence: EU)
  Receive Date: 20251229
  Receipt Date: 20251229
  Transmission Date: 20260118
  Serious: Yes (Hospitalization, Other)
  Sender: NOVO NORDISK
  Company Number: None

PATIENT
  Age: 58 Year
  Sex: Male

DRUGS (3)
  1. WEGOVY [Suspect]
     Active Substance: SEMAGLUTIDE
     Indication: Overweight
     Dosage: 2.4 MG, QW
     Route: 058
     Dates: start: 20241028, end: 20251109
  2. Candesartan ^Krka^ [Concomitant]
     Indication: Hypertension
     Dosage: 16 MG, QD
     Dates: start: 202303
  3. Amlodipin ^2care4^ [Concomitant]
     Indication: Hypertension
     Dosage: 5 MG, QD
     Dates: start: 20250912

REACTIONS (4)
  - Intracranial pressure increased [Recovering/Resolving]
  - Dizziness [Unknown]
  - Nausea [Unknown]
  - Headache [Unknown]

NARRATIVE: CASE EVENT DATE: 20251103
